FAERS Safety Report 25639007 (Version 1)
Quarter: 2025Q3

REPORT INFORMATION
  Report Type: Spontaneous
  Country: GB (occurrence: GB)
  Receive Date: 20250804
  Receipt Date: 20250804
  Transmission Date: 20251021
  Serious: Yes (Other)
  Sender: MYLAN
  Company Number: GB-MHRA-TPP12341112C7350835YC1753804411964

PATIENT
  Age: 46 Year
  Sex: Male
  Weight: 64 kg

DRUGS (32)
  1. ATORVASTATIN [Suspect]
     Active Substance: ATORVASTATIN
     Indication: Ill-defined disorder
  2. ATORVASTATIN [Suspect]
     Active Substance: ATORVASTATIN
     Route: 065
  3. ATORVASTATIN [Suspect]
     Active Substance: ATORVASTATIN
     Route: 065
  4. ATORVASTATIN [Suspect]
     Active Substance: ATORVASTATIN
  5. PRASUGREL [Concomitant]
     Active Substance: PRASUGREL
     Indication: Ill-defined disorder
     Dosage: 1 DOSAGE FORM, QD (ONE TO BE TAKEN DAILY)
     Dates: start: 20250327
  6. PRASUGREL [Concomitant]
     Active Substance: PRASUGREL
     Dosage: 1 DOSAGE FORM, QD (ONE TO BE TAKEN DAILY)
     Route: 065
     Dates: start: 20250327
  7. PRASUGREL [Concomitant]
     Active Substance: PRASUGREL
     Dosage: 1 DOSAGE FORM, QD (ONE TO BE TAKEN DAILY)
     Route: 065
     Dates: start: 20250327
  8. PRASUGREL [Concomitant]
     Active Substance: PRASUGREL
     Dosage: 1 DOSAGE FORM, QD (ONE TO BE TAKEN DAILY)
     Dates: start: 20250327
  9. ASPIRIN [Concomitant]
     Active Substance: ASPIRIN
     Indication: Ill-defined disorder
     Dosage: 1 DOSAGE FORM, QD (ONE TABLET DISSOLVED IN WATER AND TAKEN ONCE DA...)
     Dates: start: 20250327
  10. ASPIRIN [Concomitant]
     Active Substance: ASPIRIN
     Dosage: 1 DOSAGE FORM, QD (ONE TABLET DISSOLVED IN WATER AND TAKEN ONCE DA...)
     Route: 065
     Dates: start: 20250327
  11. ASPIRIN [Concomitant]
     Active Substance: ASPIRIN
     Dosage: 1 DOSAGE FORM, QD (ONE TABLET DISSOLVED IN WATER AND TAKEN ONCE DA...)
     Route: 065
     Dates: start: 20250327
  12. ASPIRIN [Concomitant]
     Active Substance: ASPIRIN
     Dosage: 1 DOSAGE FORM, QD (ONE TABLET DISSOLVED IN WATER AND TAKEN ONCE DA...)
     Dates: start: 20250327
  13. ATORVASTATIN [Concomitant]
     Active Substance: ATORVASTATIN
     Indication: Hypercholesterolaemia
     Dosage: 1 DOSAGE FORM, QD (ONE TO BE TAKEN DAILY TO LOWER CHOLESTEROL)
     Dates: start: 20250327, end: 20250729
  14. ATORVASTATIN [Concomitant]
     Active Substance: ATORVASTATIN
     Dosage: 1 DOSAGE FORM, QD (ONE TO BE TAKEN DAILY TO LOWER CHOLESTEROL)
     Route: 065
     Dates: start: 20250327, end: 20250729
  15. ATORVASTATIN [Concomitant]
     Active Substance: ATORVASTATIN
     Dosage: 1 DOSAGE FORM, QD (ONE TO BE TAKEN DAILY TO LOWER CHOLESTEROL)
     Route: 065
     Dates: start: 20250327, end: 20250729
  16. ATORVASTATIN [Concomitant]
     Active Substance: ATORVASTATIN
     Dosage: 1 DOSAGE FORM, QD (ONE TO BE TAKEN DAILY TO LOWER CHOLESTEROL)
     Dates: start: 20250327, end: 20250729
  17. BISOPROLOL [Concomitant]
     Active Substance: BISOPROLOL
     Indication: Cardiac disorder
     Dosage: 1 DOSAGE FORM, QD (ONE TABLET ONCE DAILY, TO HELP HEART)
     Dates: start: 20250327
  18. BISOPROLOL [Concomitant]
     Active Substance: BISOPROLOL
     Dosage: 1 DOSAGE FORM, QD (ONE TABLET ONCE DAILY, TO HELP HEART)
     Route: 065
     Dates: start: 20250327
  19. BISOPROLOL [Concomitant]
     Active Substance: BISOPROLOL
     Dosage: 1 DOSAGE FORM, QD (ONE TABLET ONCE DAILY, TO HELP HEART)
     Route: 065
     Dates: start: 20250327
  20. BISOPROLOL [Concomitant]
     Active Substance: BISOPROLOL
     Dosage: 1 DOSAGE FORM, QD (ONE TABLET ONCE DAILY, TO HELP HEART)
     Dates: start: 20250327
  21. DAPAGLIFLOZIN [Concomitant]
     Active Substance: DAPAGLIFLOZIN
     Indication: Ill-defined disorder
     Dosage: 1 DOSAGE FORM, QD (TAKE ONE DAILY)
     Dates: start: 20250327
  22. DAPAGLIFLOZIN [Concomitant]
     Active Substance: DAPAGLIFLOZIN
     Dosage: 1 DOSAGE FORM, QD (TAKE ONE DAILY)
     Route: 065
     Dates: start: 20250327
  23. DAPAGLIFLOZIN [Concomitant]
     Active Substance: DAPAGLIFLOZIN
     Dosage: 1 DOSAGE FORM, QD (TAKE ONE DAILY)
     Route: 065
     Dates: start: 20250327
  24. DAPAGLIFLOZIN [Concomitant]
     Active Substance: DAPAGLIFLOZIN
     Dosage: 1 DOSAGE FORM, QD (TAKE ONE DAILY)
     Dates: start: 20250327
  25. LANSOPRAZOLE [Concomitant]
     Active Substance: LANSOPRAZOLE
     Indication: Prophylaxis
     Dosage: 1 DOSAGE FORM, AM (ONE CAPSULE IN THE MORNING, TO PREVENT INDIGESTION)
     Dates: start: 20250327
  26. LANSOPRAZOLE [Concomitant]
     Active Substance: LANSOPRAZOLE
     Dosage: 1 DOSAGE FORM, AM (ONE CAPSULE IN THE MORNING, TO PREVENT INDIGESTION)
     Route: 065
     Dates: start: 20250327
  27. LANSOPRAZOLE [Concomitant]
     Active Substance: LANSOPRAZOLE
     Dosage: 1 DOSAGE FORM, AM (ONE CAPSULE IN THE MORNING, TO PREVENT INDIGESTION)
     Route: 065
     Dates: start: 20250327
  28. LANSOPRAZOLE [Concomitant]
     Active Substance: LANSOPRAZOLE
     Dosage: 1 DOSAGE FORM, AM (ONE CAPSULE IN THE MORNING, TO PREVENT INDIGESTION)
     Dates: start: 20250327
  29. RAMIPRIL [Concomitant]
     Active Substance: RAMIPRIL
     Indication: Ill-defined disorder
     Dosage: 3 DOSAGE FORM, QD (THREE TO BE TAKEN DAILY (TOTAL DOSE 3.75MG)
     Dates: start: 20250327
  30. RAMIPRIL [Concomitant]
     Active Substance: RAMIPRIL
     Dosage: 3 DOSAGE FORM, QD (THREE TO BE TAKEN DAILY (TOTAL DOSE 3.75MG)
     Route: 065
     Dates: start: 20250327
  31. RAMIPRIL [Concomitant]
     Active Substance: RAMIPRIL
     Dosage: 3 DOSAGE FORM, QD (THREE TO BE TAKEN DAILY (TOTAL DOSE 3.75MG)
     Route: 065
     Dates: start: 20250327
  32. RAMIPRIL [Concomitant]
     Active Substance: RAMIPRIL
     Dosage: 3 DOSAGE FORM, QD (THREE TO BE TAKEN DAILY (TOTAL DOSE 3.75MG)
     Dates: start: 20250327

REACTIONS (5)
  - Myalgia [Recovered/Resolved]
  - Abnormal dreams [Recovered/Resolved]
  - Insomnia [Recovered/Resolved]
  - Tendon discomfort [Recovered/Resolved]
  - Pain in extremity [Recovered/Resolved]

NARRATIVE: CASE EVENT DATE: 20250729
